FAERS Safety Report 9907930 (Version 1)
Quarter: 2014Q1

REPORT INFORMATION
  Report Type: Spontaneous
  Country: US (occurrence: US)
  Receive Date: 20140219
  Receipt Date: 20140219
  Transmission Date: 20141002
  Serious: No
  Sender: FDA-Public Use
  Company Number: US-BIOGENIDEC-2014BI015787

PATIENT
  Age: 36 Year
  Sex: Male

DRUGS (6)
  1. TECFIDERA [Suspect]
     Indication: MULTIPLE SCLEROSIS
     Route: 048
     Dates: start: 201401
  2. NEURONTIN [Concomitant]
  3. CALCIUM + D3 [Concomitant]
  4. FOLBEE [Concomitant]
  5. FISH OIL [Concomitant]
  6. CVS VITAMIN D [Concomitant]

REACTIONS (1)
  - Dry mouth [Unknown]
